FAERS Safety Report 20809305 (Version 1)
Quarter: 2022Q2

REPORT INFORMATION
  Report Type: Spontaneous
  Country: US (occurrence: None)
  Receive Date: 20220509
  Receipt Date: 20220509
  Transmission Date: 20220720
  Serious: Yes (Hospitalization)
  Sender: FDA-Public Use
  Company Number: None

PATIENT
  Age: 67 Year
  Sex: Male

DRUGS (2)
  1. IBUPROFEN [Suspect]
     Active Substance: IBUPROFEN
     Dosage: FREQUENCY : AS NEEDED;?
     Route: 048
     Dates: start: 20201012, end: 20201109
  2. NAPROXEN [Suspect]
     Active Substance: NAPROXEN
     Dosage: FREQUENCY : TWICE A DAY;?
     Route: 048
     Dates: start: 20201128, end: 20201204

REACTIONS (3)
  - Gastrointestinal haemorrhage [None]
  - Metabolic acidosis [None]
  - Acute kidney injury [None]

NARRATIVE: CASE EVENT DATE: 20210105
